FAERS Safety Report 5065392-1 (Version None)
Quarter: 2006Q3

REPORT INFORMATION
  Report Type: 
  Country: None (occurrence: None)
  Receive Date: 20060725
  Receipt Date: 20060712
  Transmission Date: 20061208
  Serious: Yes (Life-Threatening, Hospitalization)
  Sender: FDA-Public Use
  Company Number: 236646K05USA

PATIENT
  Age: 34 Year
  Sex: Female
  Weight: 110.2241 kg

DRUGS (7)
  1. REBIF [Suspect]
     Indication: MULTIPLE SCLEROSIS
     Dosage: 44 MCG, 3 IN 1 WEEKS, SUBCUTANEOUS
     Route: 058
     Dates: start: 20030305, end: 20050826
  2. KEPPRA [Suspect]
     Dosage: 500 MG, 2 IN 1 DAYS, ORAL
     Route: 048
     Dates: end: 20050801
  3. NEURONTIN [Concomitant]
  4. TRAZODONE HCL [Concomitant]
  5. CARBATROL [Concomitant]
  6. ZOLOFT [Concomitant]
  7. SOLU-MEDROL [Concomitant]

REACTIONS (3)
  - DEPRESSION [None]
  - INTENTIONAL OVERDOSE [None]
  - SUICIDE ATTEMPT [None]
